FAERS Safety Report 21678205 (Version 1)
Quarter: 2022Q4

REPORT INFORMATION
  Report Type: Report from Study
  Country: EG (occurrence: EG)
  Receive Date: 20221203
  Receipt Date: 20221203
  Transmission Date: 20230112
  Serious: Yes (Other)
  Sender: FDA-Public Use
  Company Number: EG-002147023-NVSC2022EG276158

PATIENT
  Age: 8 Year
  Sex: Female

DRUGS (1)
  1. OMNITROPE [Suspect]
     Active Substance: SOMATROPIN
     Indication: Growth hormone deficiency
     Dosage: 1 MG/DAY THEN INCREASED TO 1.1 AFTER MAY BE 3-4 MONTHS (JUN 2022) THEN TO 1.2 MG/DAY AFTER 3 MONTHS
     Route: 065
     Dates: start: 20220222, end: 20221123

REACTIONS (6)
  - Blood pressure increased [Recovered/Resolved]
  - Headache [Recovering/Resolving]
  - Poor quality device used [Not Recovered/Not Resolved]
  - Wrong technique in product usage process [Not Recovered/Not Resolved]
  - Multiple use of single-use product [Not Recovered/Not Resolved]
  - Product dose omission issue [Not Recovered/Not Resolved]

NARRATIVE: CASE EVENT DATE: 20220222
